FAERS Safety Report 9387013 (Version 2)
Quarter: 2013Q3

REPORT INFORMATION
  Report Type: Spontaneous
  Country: GB (occurrence: GB)
  Receive Date: 20130708
  Receipt Date: 20130808
  Transmission Date: 20140515
  Serious: Yes (Other)
  Sender: FDA-Public Use
  Company Number: GB-ACCORD-018332

PATIENT
  Age: 58 Year
  Sex: Female
  Weight: 85.72 kg

DRUGS (8)
  1. SIMVASTATIN [Suspect]
     Indication: BLOOD CHOLESTEROL INCREASED
     Dosage: STRENGTH: 10 MG
     Route: 048
     Dates: start: 20120808, end: 20121212
  2. LANSOPRAZOLE [Concomitant]
  3. BETAHISTINE [Concomitant]
  4. THYROXINE [Concomitant]
  5. FLUOXETINE [Concomitant]
  6. MIRTAZAPINE [Concomitant]
  7. PARACETAMOL [Concomitant]
  8. LIVIAL [Concomitant]

REACTIONS (8)
  - Dyspnoea [Not Recovered/Not Resolved]
  - Dysphonia [Not Recovered/Not Resolved]
  - Influenza like illness [Recovering/Resolving]
  - Swelling face [Recovering/Resolving]
  - Malaise [Recovering/Resolving]
  - Drug ineffective [Unknown]
  - Chest discomfort [Not Recovered/Not Resolved]
  - Pyrexia [Recovering/Resolving]
